FAERS Safety Report 7824958-3 (Version None)
Quarter: 2011Q4

REPORT INFORMATION
  Report Type: 
  Country: None (occurrence: None)
  Receive Date: 20111019
  Receipt Date: 20110309
  Transmission Date: 20120403
  Serious: Yes (Hospitalization)
  Sender: FDA-Public Use
  Company Number: US-BRISTOL-MYERS SQUIBB COMPANY-15599921

PATIENT
  Sex: Female

DRUGS (3)
  1. AVALIDE [Suspect]
     Dosage: 1 DF=300/12.5MG
  2. CARDIZEM [Concomitant]
  3. SIMVASTATIN [Concomitant]

REACTIONS (1)
  - CHEST DISCOMFORT [None]
